FAERS Safety Report 4909018-3 (Version None)
Quarter: 2006Q1

REPORT INFORMATION
  Report Type: 
  Country: None (occurrence: None)
  Receive Date: 20060213
  Receipt Date: 20060127
  Transmission Date: 20060701
  Serious: Yes (Hospitalization)
  Sender: FDA-Public Use
  Company Number: BR-BOEHRINGER INGELHEIM PHARMACEUTICALS, INC.-2006-BP-01020BR

PATIENT
  Sex: Male

DRUGS (14)
  1. TIPRANAVIR / RITONAVIR CAPSULES [Suspect]
     Indication: HIV INFECTION
     Route: 048
     Dates: start: 20031015
  2. TENOFOVIR [Concomitant]
     Indication: HIV INFECTION
  3. ABACAVIR [Concomitant]
     Indication: HIV INFECTION
  4. RITONAVIR [Concomitant]
     Indication: HIV INFECTION
  5. DIDANOSINE [Concomitant]
     Indication: HIV INFECTION
  6. NORVIR [Concomitant]
     Indication: HIV INFECTION
  7. VIDEX [Concomitant]
     Indication: HIV INFECTION
  8. COTRIM [Concomitant]
     Indication: HIV INFECTION
  9. FLUCONAZOLE [Concomitant]
  10. CALCIUM CARBONATE [Concomitant]
  11. PRAVASTATIN [Concomitant]
  12. VIREAD [Concomitant]
     Indication: HIV INFECTION
  13. DARAPRIM [Concomitant]
  14. ZIAGEN [Concomitant]
     Indication: HIV INFECTION

REACTIONS (5)
  - CEREBRAL TOXOPLASMOSIS [None]
  - DIZZINESS [None]
  - PYREXIA [None]
  - VOMITING [None]
  - WEIGHT DECREASED [None]
